FAERS Safety Report 10479964 (Version 1)
Quarter: 2014Q3

REPORT INFORMATION
  Report Type: Report from Study
  Country: US (occurrence: US)
  Receive Date: 20140929
  Receipt Date: 20140929
  Transmission Date: 20150326
  Serious: Yes (Death)
  Sender: FDA-Public Use
  Company Number: US-ROCHE-1466245

PATIENT
  Age: 61 Year
  Sex: Male

DRUGS (4)
  1. BEVACIZUMAB [Suspect]
     Active Substance: BEVACIZUMAB
     Indication: GLIOBLASTOMA
     Dosage: OVER 60-120 MIN ON DAYS 1 +15
     Route: 042
     Dates: start: 20131227
  2. LOVENOX [Suspect]
     Active Substance: ENOXAPARIN SODIUM
     Indication: PRODUCT USED FOR UNKNOWN INDICATION
     Route: 065
  3. DECADRON [Suspect]
     Active Substance: DEXAMETHASONE
     Indication: PRODUCT USED FOR UNKNOWN INDICATION
     Route: 065
  4. BLINDED AMG 386 [Suspect]
     Active Substance: TREBANANIB
     Indication: GLIOBLASTOMA
     Dosage: CYCLE 28 DAYS?OVER 30-60 MIN ON DAYS 1, 8, 15, + 22?LAST DOSE ADMINISTERED 10/JAN/2014
     Route: 042

REACTIONS (3)
  - Haemorrhage intracranial [Fatal]
  - Wound infection [Fatal]
  - Hydrocephalus [Fatal]

NARRATIVE: CASE EVENT DATE: 20140113
